FAERS Safety Report 7149430-8 (Version None)
Quarter: 2010Q4

REPORT INFORMATION
  Report Type: 
  Country: None (occurrence: None)
  Receive Date: 20101209
  Receipt Date: 20101014
  Transmission Date: 20110411
  Serious: No
  Sender: FDA-Public Use
  Company Number: US-KINGPHARMUSA00001-K201001281

PATIENT
  Sex: Male

DRUGS (12)
  1. EMBEDA [Suspect]
     Indication: PAIN
     Dosage: 80 MG, Q12H
     Route: 048
     Dates: start: 20100921, end: 20100901
  2. NORCO [Concomitant]
  3. OMEPRAZOLE [Concomitant]
  4. FLUTICASONE W/SALMETEROL [Concomitant]
  5. AZITHROMYCIN [Concomitant]
  6. HUMALOG [Concomitant]
  7. LANTUS [Concomitant]
  8. CIPROFLOXACIN [Concomitant]
  9. PREDNISONE [Concomitant]
  10. PANCRELIPASE [Concomitant]
  11. CALCIUM [Suspect]
  12. CALCIUM CARBONATE [Concomitant]

REACTIONS (2)
  - CHILLS [None]
  - HYPERHIDROSIS [None]
